FAERS Safety Report 9628120 (Version 2)
Quarter: 2013Q4

REPORT INFORMATION
  Report Type: Spontaneous
  Country: US (occurrence: US)
  Receive Date: 20131017
  Receipt Date: 20131116
  Transmission Date: 20140711
  Serious: No
  Sender: FDA-Public Use
  Company Number: US-009507513-1310USA005080

PATIENT
  Age: 27 Year
  Sex: Female
  Weight: 108.84 kg

DRUGS (1)
  1. IMPLANON [Suspect]
     Indication: CONTRACEPTION
     Dosage: 1 ROD/THREE YEARS
     Route: 059
     Dates: start: 20101213

REACTIONS (2)
  - Device breakage [Recovered/Resolved]
  - Implant site pruritus [Recovering/Resolving]
